FAERS Safety Report 12932454 (Version 2)
Quarter: 2017Q2

REPORT INFORMATION
  Report Type: Report from Study
  Country: US (occurrence: US)
  Receive Date: 20161111
  Receipt Date: 20170420
  Transmission Date: 20170830
  Serious: No
  Sender: FDA-Public Use
  Company Number: US-AMGEN-USASL2016152100

PATIENT
  Age: 60 Year
  Sex: Female

DRUGS (1)
  1. ENBREL [Suspect]
     Active Substance: ETANERCEPT
     Indication: PSORIATIC ARTHROPATHY
     Dosage: 50 MG, QWK
     Route: 065
     Dates: start: 201609

REACTIONS (4)
  - Injection site erythema [Recovered/Resolved]
  - Injection site pruritus [Unknown]
  - Injection site bruising [Unknown]
  - Injection site swelling [Unknown]

NARRATIVE: CASE EVENT DATE: 2016
